FAERS Safety Report 21465772 (Version 3)
Quarter: 2023Q4

REPORT INFORMATION
  Report Type: Spontaneous
  Country: US (occurrence: US)
  Receive Date: 20221017
  Receipt Date: 20231024
  Transmission Date: 20240110
  Serious: Yes (Other)
  Sender: FDA-Public Use
  Company Number: US-PFIZER INC-PV202200083802

PATIENT
  Age: 71 Year
  Sex: Male

DRUGS (5)
  1. DOCETAXEL [Suspect]
     Active Substance: DOCETAXEL
     Indication: Breast cancer metastatic
     Dosage: 75 MG/M2, SINGLE (FIRST CYCLE, EVERY 3 WEEKS, TOTAL 3 CYCLES)
     Dates: start: 20120116, end: 20120116
  2. DOCETAXEL [Suspect]
     Active Substance: DOCETAXEL
     Indication: Paget^s disease of nipple
     Dosage: 75 MG/M2, SINGLE (SECOND CYCLE, EVERY 3 WEEKS, TOTAL 3 CYCLES)
     Dates: start: 201202, end: 201202
  3. DOCETAXEL [Suspect]
     Active Substance: DOCETAXEL
     Dosage: 67.5 MG/M2, SINGLE (THIRD CYCLE, EVERY 3 WEEKS, TOTAL 3 CYCLES)
     Dates: start: 20120227, end: 20120227
  4. CARBOPLATIN [Concomitant]
     Active Substance: CARBOPLATIN
     Indication: Chemotherapy
     Dosage: UNK
  5. HERCEPTIN [Concomitant]
     Active Substance: TRASTUZUMAB
     Indication: Chemotherapy
     Dosage: UNK

REACTIONS (3)
  - Lacrimation increased [Not Recovered/Not Resolved]
  - Dacryostenosis acquired [Not Recovered/Not Resolved]
  - Lacrimal structure injury [Unknown]

NARRATIVE: CASE EVENT DATE: 20120201
